FAERS Safety Report 5906896-6 (Version None)
Quarter: 2008Q4

REPORT INFORMATION
  Report Type: 
  Country: None (occurrence: None)
  Receive Date: 20081003
  Receipt Date: 20080926
  Transmission Date: 20090506
  Serious: Yes (Other)
  Sender: FDA-Public Use
  Company Number: BR-RANBAXY-2008US-18280

PATIENT

DRUGS (1)
  1. TRIAMCINOLONE [Suspect]
     Indication: DRUG USE FOR UNKNOWN INDICATION
     Dosage: UNK, UNK
     Dates: start: 20080922

REACTIONS (3)
  - ACCIDENTAL EXPOSURE [None]
  - PHARYNGITIS [None]
  - PYREXIA [None]
